FAERS Safety Report 7415210-9 (Version None)
Quarter: 2011Q2

REPORT INFORMATION
  Report Type: 
  Country: None (occurrence: None)
  Receive Date: 20110414
  Receipt Date: 20110408
  Transmission Date: 20111010
  Serious: Yes (Other)
  Sender: FDA-Public Use
  Company Number: PHHY2011US29984

PATIENT
  Sex: Female

DRUGS (3)
  1. VIVELLE-DOT [Suspect]
     Dosage: 0.25 MG, TWICE PER WEEK
     Route: 062
  2. TOPROL-XL [Concomitant]
  3. PRAVASAPIN [Concomitant]

REACTIONS (3)
  - FLUSHING [None]
  - HOT FLUSH [None]
  - WITHDRAWAL SYNDROME [None]
